FAERS Safety Report 9190923 (Version 1)
Quarter: 2013Q1

REPORT INFORMATION
  Report Type: Spontaneous
  Country: RU (occurrence: RU)
  Receive Date: 20130326
  Receipt Date: 20130326
  Transmission Date: 20140127
  Serious: Yes (Death, Other)
  Sender: FDA-Public Use
  Company Number: PHHY2013RU029167

PATIENT
  Sex: Female

DRUGS (3)
  1. ONBREZ [Suspect]
     Indication: CHRONIC OBSTRUCTIVE PULMONARY DISEASE
     Dosage: 150 UG, UNK
  2. BERODUAL [Concomitant]
  3. MUCOLYTICS [Concomitant]

REACTIONS (3)
  - Cardiac death [Fatal]
  - Angina pectoris [Unknown]
  - Dyspnoea [Unknown]
